FAERS Safety Report 24042283 (Version 2)
Quarter: 2024Q3

REPORT INFORMATION
  Report Type: Report from Study
  Country: US (occurrence: US)
  Receive Date: 20240702
  Receipt Date: 20240726
  Transmission Date: 20241016
  Serious: Yes (Other)
  Sender: PFIZER
  Company Number: US-SEATTLE GENETICS-2024SGN06260

PATIENT
  Age: 35 Year
  Sex: Female

DRUGS (3)
  1. TUKYSA [Suspect]
     Active Substance: TUCATINIB
     Dosage: 300MG PO (ORAL) BID (TWICE A DAY)
     Route: 048
  2. TUKYSA [Suspect]
     Active Substance: TUCATINIB
     Dosage: 300MG PO (ORAL) BID (TWICE A DAY)
     Route: 048
  3. CAPECITABINE [Suspect]
     Active Substance: CAPECITABINE
     Dosage: UNK

REACTIONS (9)
  - Cardiac flutter [Unknown]
  - Product dose omission in error [Unknown]
  - Memory impairment [Unknown]
  - Mental disorder [Unknown]
  - Dry skin [Unknown]
  - Skin burning sensation [Recovered/Resolved]
  - Chest pain [Unknown]
  - Headache [Not Recovered/Not Resolved]
  - Rash [Unknown]

NARRATIVE: CASE EVENT DATE: 20240520
